FAERS Safety Report 13081353 (Version 1)
Quarter: 2017Q1

REPORT INFORMATION
  Report Type: Spontaneous
  Country: AU (occurrence: AU)
  Receive Date: 20170103
  Receipt Date: 20170103
  Transmission Date: 20170428
  Serious: Yes (Other)
  Sender: FDA-Public Use
  Company Number: AU-JNJFOC-20161226071

PATIENT
  Age: 58 Year
  Sex: Male

DRUGS (1)
  1. REMICADE [Suspect]
     Active Substance: INFLIXIMAB
     Indication: PSORIASIS
     Dosage: STANDARD INDUCTION (WEEKS 0, 2 AND 6) AND MAINTENANCE (8-WEEKLY)
     Route: 042
     Dates: start: 200705, end: 200910

REACTIONS (1)
  - Squamous cell carcinoma [Unknown]

NARRATIVE: CASE EVENT DATE: 200907
